FAERS Safety Report 14728467 (Version 1)
Quarter: 2018Q2

REPORT INFORMATION
  Report Type: Report from Study
  Country: US (occurrence: US)
  Receive Date: 20180406
  Receipt Date: 20180406
  Transmission Date: 20180711
  Serious: Yes (Life-Threatening)
  Sender: FDA-Public Use
  Company Number: US-JNJFOC-20180200714

PATIENT
  Sex: Female

DRUGS (2)
  1. STELARA [Suspect]
     Active Substance: USTEKINUMAB
     Indication: CROHN^S DISEASE
     Route: 042
     Dates: start: 20180403
  2. STELARA [Suspect]
     Active Substance: USTEKINUMAB
     Indication: CROHN^S DISEASE
     Route: 042
     Dates: start: 20171219

REACTIONS (12)
  - Erythema [Unknown]
  - Paraesthesia [Unknown]
  - Epistaxis [Unknown]
  - Sinusitis [Unknown]
  - Dyspnoea [Not Recovered/Not Resolved]
  - Infusion related reaction [Unknown]
  - Headache [Not Recovered/Not Resolved]
  - Discomfort [Unknown]
  - Arthralgia [Unknown]
  - Tooth infection [Not Recovered/Not Resolved]
  - Lethargy [Unknown]
  - Chest discomfort [Unknown]

NARRATIVE: CASE EVENT DATE: 20180114
